FAERS Safety Report 5916220-0 (Version None)
Quarter: 2008Q4

REPORT INFORMATION
  Report Type: 
  Country: None (occurrence: None)
  Receive Date: 20081013
  Receipt Date: 20081002
  Transmission Date: 20090506
  Serious: Yes (Hospitalization)
  Sender: FDA-Public Use
  Company Number: US-JNJFOC-20080504829

PATIENT
  Sex: Male
  Weight: 153.5 kg

DRUGS (6)
  1. DOXIL [Suspect]
     Indication: MULTIPLE MYELOMA
     Route: 065
  2. DEXAMETHASONE [Suspect]
     Route: 048
  3. DEXAMETHASONE [Suspect]
     Indication: MULTIPLE MYELOMA
     Route: 048
  4. THALIDOMIDE [Suspect]
     Route: 048
  5. THALIDOMIDE [Suspect]
     Indication: MULTIPLE MYELOMA
     Route: 048
  6. BORTEZOMIB [Suspect]
     Indication: MULTIPLE MYELOMA

REACTIONS (2)
  - DIZZINESS [None]
  - HYPERGLYCAEMIA [None]
